FAERS Safety Report 19879427 (Version 1)
Quarter: 2021Q3

REPORT INFORMATION
  Report Type: Spontaneous
  Country: GB (occurrence: GB)
  Receive Date: 20210924
  Receipt Date: 20210924
  Transmission Date: 20211014
  Serious: Yes (Life-Threatening, Hospitalization, Disabling, Other)
  Sender: FDA-Public Use
  Company Number: NVSC2021GB214675

PATIENT
  Age: 56 Year
  Sex: Female

DRUGS (2)
  1. POSACONAZOLE [Concomitant]
     Active Substance: POSACONAZOLE
     Indication: ILL-DEFINED DISORDER
     Dosage: UNK
     Route: 065
  2. FLUDARABINE [Suspect]
     Active Substance: FLUDARABINE PHOSPHATE
     Indication: ALLOGENIC STEM CELL TRANSPLANTATION
     Dosage: 30MG/M2 D?6 TO D ?2
     Route: 042
     Dates: start: 20210709

REACTIONS (1)
  - Encephalopathy [Not Recovered/Not Resolved]

NARRATIVE: CASE EVENT DATE: 20210825
